FAERS Safety Report 7692581 (Version 2)
Quarter: 2013Q1

REPORT INFORMATION
  Report Type: Spontaneous
  Country: US (occurrence: None)
  Receive Date: 20101108
  Receipt Date: 20121025
  Transmission Date: 20140127
  Serious: No
  Sender: FDA-Public Use
  Company Number: 742137

PATIENT
  Age: 60 Year
  Sex: Male

DRUGS (2)
  1. FLUDARABINE PHOSPHATE [Suspect]
     Dosage: 25 MG/M 2 MILLIGRAM(S)/SQ. METER,
  2. CYCLOPHOSPHAMIDE [Concomitant]
     Dosage: 60 MG/KG MILLIGRAM(S)/KILOGRAM

REACTIONS (5)
  - BLINDNESS [None]
  - NEOPLASM MALIGNANT [None]
  - MALIGNANT MELANOMA [None]
  - OPTIC ATROPHY [None]
  - NERVOUS SYSTEM DISORDER [None]
